FAERS Safety Report 9166999 (Version 1)
Quarter: 2013Q1

REPORT INFORMATION
  Report Type: Spontaneous
  Country: FR (occurrence: FR)
  Receive Date: 20130317
  Receipt Date: 20130317
  Transmission Date: 20140127
  Serious: Yes (Hospitalization)
  Sender: FDA-Public Use
  Company Number: FR-TEVA-390498ISR

PATIENT
  Age: 80 Year
  Sex: Female

DRUGS (4)
  1. METFORMINE [Suspect]
     Dosage: 850 MILLIGRAM DAILY;
     Route: 048
     Dates: start: 20041222, end: 20090819
  2. RAMIPRIL [Concomitant]
     Indication: HYPERTENSION
     Dosage: 5 MILLIGRAM DAILY;
     Route: 048
  3. BISOPROLOL [Concomitant]
     Indication: HYPERTENSION
     Dosage: 10 MILLIGRAM DAILY;
     Route: 048
  4. DEPAMIDE 300 MG [Concomitant]
     Indication: DEMENTIA
     Dosage: 900 MILLIGRAM DAILY;
     Route: 048

REACTIONS (4)
  - Metabolic acidosis [Recovered/Resolved]
  - Malaise [Recovered/Resolved]
  - Fall [Recovered/Resolved]
  - Dehydration [None]
